FAERS Safety Report 5771509-3 (Version None)
Quarter: 2008Q2

REPORT INFORMATION
  Report Type: 
  Country: None (occurrence: None)
  Receive Date: 20080611
  Receipt Date: 20080527
  Transmission Date: 20081010
  Serious: Yes (Hospitalization)
  Sender: FDA-Public Use
  Company Number: 230461J08CAN

PATIENT
  Age: 41 Year
  Sex: Male

DRUGS (3)
  1. REBIF [Suspect]
     Indication: MULTIPLE SCLEROSIS
     Dates: start: 20020619
  2. REBIF [Suspect]
     Indication: RELAPSING-REMITTING MULTIPLE SCLEROSIS
     Dates: start: 20020619
  3. ANTIBIOTICS [Concomitant]

REACTIONS (3)
  - INFECTION [None]
  - RECTAL CANCER [None]
  - SURGICAL PROCEDURE REPEATED [None]
